FAERS Safety Report 26020771 (Version 4)
Quarter: 2025Q4

REPORT INFORMATION
  Report Type: Report from Study
  Country: EU (occurrence: EU)
  Receive Date: 20251110
  Receipt Date: 20251121
  Transmission Date: 20260118
  Serious: Yes (Hospitalization)
  Sender: NOVARTIS
  Company Number: EU-PFIZER INC-PV202300183220

PATIENT
  Age: 89 Year
  Sex: Female
  Weight: 68 kg

DRUGS (5)
  1. FEMARA [Suspect]
     Active Substance: LETROZOLE
     Indication: Breast cancer
     Dosage: 2.5 MG, QD
     Route: 048
     Dates: start: 20230712, end: 20250129
  2. PALBOCICLIB [Suspect]
     Active Substance: PALBOCICLIB
     Indication: Breast cancer
     Dosage: 125 MG, DAILY FROM DAY 1 TO DAY 21 EVERY 28-DAY CYCLE, CYCLIC
     Route: 048
     Dates: start: 20230724, end: 20231105
  3. PREGABALIN [Concomitant]
     Active Substance: PREGABALIN
     Indication: Bone pain
     Dosage: UNK
     Route: 048
     Dates: start: 20221028
  4. BISOPROLOL [Concomitant]
     Active Substance: BISOPROLOL
     Indication: Hypertension
     Dosage: UNK
     Route: 048
     Dates: start: 2008
  5. Novalgin [Concomitant]
     Indication: Bone pain
     Dosage: UNK
     Route: 048
     Dates: start: 202304

REACTIONS (7)
  - Quadriplegia [Unknown]
  - Cerebrovascular accident [Not Recovered/Not Resolved]
  - Acute kidney injury [Unknown]
  - Thrombocytopenia [Recovered/Resolved]
  - Leukopenia [Recovered/Resolved]
  - Urosepsis [Unknown]
  - Quadriplegia [Unknown]

NARRATIVE: CASE EVENT DATE: 20231102
